FAERS Safety Report 7409980-3 (Version None)
Quarter: 2011Q2

REPORT INFORMATION
  Report Type: 
  Country: None (occurrence: None)
  Receive Date: 20110412
  Receipt Date: 20110331
  Transmission Date: 20111010
  Serious: Yes (Other)
  Sender: FDA-Public Use
  Company Number: PHHY2011FR27290

PATIENT
  Age: 64 Year
  Sex: Female

DRUGS (2)
  1. ACLASTA [Suspect]
     Indication: OSTEOPOROSIS
     Dosage: 5 MG,
     Route: 042
     Dates: start: 20110322
  2. BI-PROFENID [Concomitant]

REACTIONS (8)
  - PALLOR [None]
  - PAIN [None]
  - CHEST PAIN [None]
  - MYOCARDIAL INFARCTION [None]
  - ARRHYTHMIA [None]
  - SLEEP DISORDER [None]
  - ASTHENIA [None]
  - ELECTROCARDIOGRAM PR PROLONGATION [None]
